FAERS Safety Report 7871266-0 (Version None)
Quarter: 2011Q4

REPORT INFORMATION
  Report Type: 
  Country: None (occurrence: None)
  Receive Date: 20111029
  Receipt Date: 20110228
  Transmission Date: 20120403
  Serious: No
  Sender: FDA-Public Use
  Company Number: US-AMGEN-USASP2011010500

PATIENT
  Age: 36 Year
  Sex: Female
  Weight: 99.32 kg

DRUGS (9)
  1. ENBREL [Suspect]
     Indication: ANKYLOSING SPONDYLITIS
     Dosage: 50 MG, QWK
     Dates: start: 20110210
  2. ATENOLOL [Concomitant]
     Dosage: 50 MG, UNK
  3. METHOTREXATE [Concomitant]
     Dosage: 2.5 MG, 4 TIMES/WK
     Dates: start: 20110124
  4. ROBAXIN [Concomitant]
  5. LEUCOVORIN CALCIUM [Concomitant]
     Dosage: 5 MG, UNK
     Dates: start: 20110201
  6. FOLIC ACID [Concomitant]
     Dosage: 1 MG, UNK
     Dates: start: 20110124
  7. IBUPROFEN [Concomitant]
  8. ENBREL [Suspect]
     Indication: SPONDYLOARTHROPATHY
  9. TRAZODONE HCL [Concomitant]

REACTIONS (2)
  - VERTIGO [None]
  - MALAISE [None]
